FAERS Safety Report 7443143-0 (Version None)
Quarter: 2011Q2

REPORT INFORMATION
  Report Type: 
  Country: None (occurrence: None)
  Receive Date: 20110428
  Receipt Date: 20101202
  Transmission Date: 20111010
  Serious: Yes (Hospitalization)
  Sender: FDA-Public Use
  Company Number: A0899057A

PATIENT
  Age: 48 Year
  Sex: Female

DRUGS (1)
  1. AVANDIA [Suspect]
     Dosage: 8MG PER DAY
     Route: 048
     Dates: start: 20000731, end: 20030104

REACTIONS (4)
  - CARDIAC FAILURE CONGESTIVE [None]
  - ACUTE PULMONARY OEDEMA [None]
  - AMNESIA [None]
  - ARTERIOSCLEROSIS [None]
